FAERS Safety Report 4365370-1 (Version None)
Quarter: 2004Q2

REPORT INFORMATION
  Report Type: 
  Country: None (occurrence: None)
  Receive Date: 20040525
  Receipt Date: 20040429
  Transmission Date: 20050107
  Serious: Yes (Death)
  Sender: FDA-Public Use
  Company Number: USA040466223

PATIENT
  Age: 27 Year
  Sex: Female
  Weight: 103 kg

DRUGS (6)
  1. PROZAC [Suspect]
     Indication: BIPOLAR DISORDER
     Dosage: 80 MG/1 DAY
  2. PROZAC [Suspect]
     Indication: DEPRESSION
     Dosage: 80 MG/1 DAY
  3. ZYPREXA [Suspect]
     Indication: MANIA
     Dosage: 30 MG DAY
  4. ESKALITH [Concomitant]
  5. ALPRAZOLAM [Concomitant]
  6. RITALIN [Concomitant]

REACTIONS (4)
  - ANXIETY [None]
  - DRUG TOXICITY [None]
  - MARITAL PROBLEM [None]
  - WEIGHT DECREASED [None]
